FAERS Safety Report 4385731-4 (Version None)
Quarter: 2004Q2

REPORT INFORMATION
  Report Type: 
  Country: None (occurrence: None)
  Receive Date: 20040628
  Receipt Date: 20040615
  Transmission Date: 20050107
  Serious: Yes (Death)
  Sender: FDA-Public Use
  Company Number: FR-AMGEN-UK080321

PATIENT
  Sex: Female

DRUGS (2)
  1. NEUPOGEN [Suspect]
     Indication: NEUTROPENIA
     Dates: end: 20040101
  2. POSACONAZOLE [Suspect]
     Route: 048
     Dates: start: 20040419

REACTIONS (5)
  - BRONCHOPULMONARY ASPERGILLOSIS [None]
  - DISEASE PROGRESSION [None]
  - HAEMOPTYSIS [None]
  - NEUTROPHIL COUNT INCREASED [None]
  - RESPIRATORY DISTRESS [None]
